FAERS Safety Report 25524395 (Version 1)
Quarter: 2025Q3

REPORT INFORMATION
  Report Type: Spontaneous
  Country: US (occurrence: None)
  Receive Date: 20250703
  Receipt Date: 20250703
  Transmission Date: 20251021
  Serious: No
  Sender: FDA-CTU
  Company Number: None

PATIENT
  Age: 72 Year
  Sex: Female

DRUGS (1)
  1. MAVYRET [Suspect]
     Active Substance: GLECAPREVIR\PIBRENTASVIR
     Indication: Hepatitis C
     Dosage: OTHER QUANTITY : 100-40 MG;?FREQUENCY : 3 TIMES A DAY;?
     Route: 048
     Dates: start: 20250605

REACTIONS (1)
  - Pruritus [None]

NARRATIVE: CASE EVENT DATE: 20250703
